FAERS Safety Report 5374716-7 (Version None)
Quarter: 2007Q2

REPORT INFORMATION
  Report Type: 
  Country: None (occurrence: None)
  Receive Date: 20070627
  Receipt Date: 20070627
  Transmission Date: 20071010
  Serious: Yes (Death, Hospitalization)
  Sender: FDA-Public Use
  Company Number: None

PATIENT
  Sex: Male
  Weight: 70.7611 kg

DRUGS (1)
  1. TEMODAR [Suspect]
     Indication: METASTASES TO CENTRAL NERVOUS SYSTEM
     Dosage: 175 MG Q.D. PO
     Route: 048
     Dates: start: 20070522, end: 20070530

REACTIONS (2)
  - DIVERTICULAR PERFORATION [None]
  - LARGE INTESTINE PERFORATION [None]
